FAERS Safety Report 7905754-5 (Version None)
Quarter: 2011Q4

REPORT INFORMATION
  Report Type: 
  Country: None (occurrence: None)
  Receive Date: 20111108
  Receipt Date: 20111026
  Transmission Date: 20120403
  Serious: Yes (Hospitalization)
  Sender: FDA-Public Use
  Company Number: 1000025140

PATIENT
  Age: 88 Year
  Sex: Female

DRUGS (16)
  1. DURAGESIC-100 [Suspect]
     Indication: ARTHRALGIA
     Dosage: TRANSDERMAL
     Route: 062
     Dates: start: 20110323
  2. MORPHINE SULFATE [Suspect]
     Dosage: 24 DOSAGE FORM (8 DOSAGE FORMS,3 IN 1 D),ORAL
     Route: 048
     Dates: start: 20110323
  3. LYSANXIA (PRAZEPAM) (10 MILLIGRAM) [Suspect]
     Indication: ANXIETY
     Dosage: 3 DOSAGE FORM (1 DOSAGE FORM,3 IN 1 D),ORAL
     Route: 048
     Dates: end: 20110318
  4. CANDESARTAN (CANDESARTAN CILEXETIL) (4 MILLIGRAM, TABLETS) (CANDESARTA [Concomitant]
  5. BETASERC (BETAHISTINE) (BETAHISTINE) [Concomitant]
  6. DOLIPRANE (PARACETAMOL) (PARACETAMOL) [Concomitant]
  7. STILNOX (ZOLPIDEM TARTRATE) (ZOLPIDEM TARTRATE) [Concomitant]
  8. DURAGESIC-100 [Suspect]
     Indication: ARTHRALGIA
     Dosage: 0.3333 DOSAGE FORM (1 DOSAGE FORMS,1 IN 3 D),TRANSDERMAL
     Route: 062
     Dates: start: 20110301, end: 20110313
  9. TRANSIPEG (MACROGOL) (MACROGOL) [Concomitant]
  10. NOVONORM (REPAGLINIDE) (2 MILLIGRAM) (REPAGLINIDE) [Concomitant]
  11. ESCITALOPRAM [Suspect]
     Indication: DEPRESSION
     Dosage: 10 MG (10 MG,1 IN 1 D)
  12. COLCHICINE [Suspect]
     Dosage: ORAL
     Route: 048
  13. ECONAZOLE (ECONAZOLE) (ECONAZOLE) [Concomitant]
  14. MORPHINE SULFATE [Suspect]
     Dosage: 24 DOSAGE FORM (8 DOSAGE FORMS,3 IN 1 D),ORAL
     Route: 048
     Dates: end: 20110318
  15. GLUCOPHAGE (METFORMIN HYDROCHLORIDE) (850 MILLIGRAM, TABLETS) (METFORM [Concomitant]
  16. RISPERAL (RISPERIDONE) (RISPERIDONE) [Concomitant]

REACTIONS (2)
  - CONFUSIONAL STATE [None]
  - FALL [None]
